FAERS Safety Report 4975842-4 (Version None)
Quarter: 2006Q2

REPORT INFORMATION
  Report Type: 
  Country: None (occurrence: None)
  Receive Date: 20060411
  Receipt Date: 20060404
  Transmission Date: 20061013
  Serious: Yes (Death)
  Sender: FDA-Public Use
  Company Number: S06-USA-01163-01

PATIENT
  Age: 40 Year
  Sex: Female
  Weight: 90.2658 kg

DRUGS (7)
  1. LEXAPRO [Suspect]
     Indication: DEPRESSION
     Dosage: 20 MG QD PO
     Route: 048
     Dates: start: 20050930, end: 20051105
  2. SYNTHROID [Concomitant]
  3. ARICEPT [Concomitant]
  4. ALDACTONE [Concomitant]
  5. EFFEXOR [Concomitant]
  6. VITAMIN B COMPLEX CAP [Concomitant]
  7. FOLATE [Concomitant]

REACTIONS (5)
  - ACCIDENTAL DEATH [None]
  - DRUG TOXICITY [None]
  - FATIGUE [None]
  - LOSS OF CONSCIOUSNESS [None]
  - MALAISE [None]
